FAERS Safety Report 20258337 (Version 1)
Quarter: 2021Q4

REPORT INFORMATION
  Report Type: Spontaneous
  Country: CA (occurrence: CA)
  Receive Date: 20211230
  Receipt Date: 20211230
  Transmission Date: 20220303
  Serious: Yes (Death, Hospitalization)
  Sender: FDA-Public Use
  Company Number: CA-009507513-2112CAN009452

PATIENT

DRUGS (4)
  1. ZERBAXA [Suspect]
     Active Substance: CEFTOLOZANE SULFATE\TAZOBACTAM SODIUM
     Indication: Pseudomonas infection
     Dosage: 1 GRAM EVERY 8 HOURS
     Route: 042
  2. ZERBAXA [Suspect]
     Active Substance: CEFTOLOZANE SULFATE\TAZOBACTAM SODIUM
     Indication: Abdominal infection
  3. CEFTRIAXONE [Suspect]
     Active Substance: CEFTRIAXONE
     Indication: Pseudomonas infection
     Route: 065
  4. CEFTRIAXONE [Suspect]
     Active Substance: CEFTRIAXONE
     Indication: Abdominal infection

REACTIONS (1)
  - Drug ineffective [Fatal]
